FAERS Safety Report 5450688-1 (Version None)
Quarter: 2007Q3

REPORT INFORMATION
  Report Type: 
  Country: None (occurrence: None)
  Receive Date: 20070910
  Receipt Date: 20070828
  Transmission Date: 20080115
  Serious: Yes (Hospitalization)
  Sender: FDA-Public Use
  Company Number: 2007327770

PATIENT
  Age: 19 Year
  Sex: Female

DRUGS (2)
  1. SUDAFED PE SINUS AND ALLERGY (PHENYLEPHRINE HYDROCHLORIDE, CHLORPHENAM [Suspect]
     Indication: HYPERSENSITIVITY
     Dosage: 1 DOSE ON 30JUL07, 1 DOSE ON 31JUL2007 (1 IN 1 D), ORAL
     Route: 048
     Dates: start: 20070730, end: 20070731
  2. ORAL CONTRACEPTIVE NOS (ORAL CONTRACEPTIVE NOS) [Concomitant]

REACTIONS (6)
  - ABDOMINAL PAIN [None]
  - BURNING SENSATION [None]
  - NAUSEA [None]
  - PRURITUS [None]
  - URTICARIA [None]
  - VOMITING [None]
